FAERS Safety Report 19157262 (Version 3)
Quarter: 2021Q2

REPORT INFORMATION
  Report Type: Spontaneous
  Country: US (occurrence: US)
  Receive Date: 20210420
  Receipt Date: 20210422
  Transmission Date: 20210717
  Serious: Yes (Other)
  Sender: FDA-Public Use
  Company Number: NVSC2021US086213

PATIENT
  Sex: Female

DRUGS (1)
  1. TRAMETINIB [Suspect]
     Active Substance: TRAMETINIB
     Indication: OVARIAN CANCER
     Dosage: 2 MG, QD
     Route: 065

REACTIONS (2)
  - Ovarian cancer recurrent [Unknown]
  - Product use in unapproved indication [Unknown]
